FAERS Safety Report 21550964 (Version 1)
Quarter: 2022Q4

REPORT INFORMATION
  Report Type: Spontaneous
  Country: US (occurrence: US)
  Receive Date: 20221103
  Receipt Date: 20221103
  Transmission Date: 20230112
  Serious: No
  Sender: FDA-Public Use
  Company Number: US-TAKEDA-2022TUS081809

PATIENT

DRUGS (2)
  1. VYVANSE [Suspect]
     Active Substance: LISDEXAMFETAMINE DIMESYLATE
     Indication: Product used for unknown indication
     Dosage: UNK
     Route: 065
  2. VIVARIN [Concomitant]
     Active Substance: CAFFEINE
     Dosage: 0.5 DOSAGE FORM
     Route: 065

REACTIONS (8)
  - Feeling abnormal [Unknown]
  - Frustration tolerance decreased [Unknown]
  - Psychomotor hyperactivity [Unknown]
  - Panic reaction [Unknown]
  - Anxiety [Unknown]
  - Fatigue [Unknown]
  - Unevaluable event [Unknown]
  - Cyanosis [Unknown]
